FAERS Safety Report 7117193-8 (Version None)
Quarter: 2010Q4

REPORT INFORMATION
  Report Type: 
  Country: None (occurrence: None)
  Receive Date: 20101122
  Receipt Date: 20101117
  Transmission Date: 20110411
  Serious: Yes (Hospitalization)
  Sender: FDA-Public Use
  Company Number: KZ-GENZYME-CAMP-1001083

PATIENT
  Sex: Male

DRUGS (8)
  1. MABCAMPATH [Suspect]
     Indication: CHRONIC LYMPHOCYTIC LEUKAEMIA
     Dosage: 3 MG, UNK
     Route: 042
     Dates: start: 20100903, end: 20100901
  2. MABCAMPATH [Suspect]
     Dosage: 10 MG, UNK
     Route: 042
     Dates: start: 20100901, end: 20100901
  3. MABCAMPATH [Suspect]
     Dosage: 30 MG, UNK
     Route: 042
     Dates: start: 20100901, end: 20100908
  4. FLUDARA [Suspect]
     Indication: CHRONIC LYMPHOCYTIC LEUKAEMIA
     Dosage: 25 MG/M2, UNK
     Route: 042
  5. CYCLOPHOSPHAMIDE [Concomitant]
     Indication: CHRONIC LYMPHOCYTIC LEUKAEMIA
     Route: 065
  6. VINCRISTINE [Concomitant]
     Indication: CHRONIC LYMPHOCYTIC LEUKAEMIA
     Route: 065
  7. DOXORUBICIN HCL [Concomitant]
     Indication: CHRONIC LYMPHOCYTIC LEUKAEMIA
     Route: 065
  8. CYCLOPHOSPHAMIDE [Concomitant]
     Route: 065

REACTIONS (3)
  - ABDOMINAL PAIN [None]
  - BODY TEMPERATURE FLUCTUATION [None]
  - CYTOMEGALOVIRUS TEST POSITIVE [None]
